FAERS Safety Report 20349306 (Version 2)
Quarter: 2022Q1

REPORT INFORMATION
  Report Type: Other
  Country: US (occurrence: None)
  Receive Date: 20220119
  Receipt Date: 20220203
  Transmission Date: 20220423
  Serious: Yes (Hospitalization)
  Sender: FDA-Public Use
  Company Number: US-ROCHE-3000423

PATIENT
  Sex: Female

DRUGS (1)
  1. CELLCEPT [Suspect]
     Active Substance: MYCOPHENOLATE MOFETIL
     Indication: Renal transplant
     Dosage: 250MG 3 BID
     Route: 065

REACTIONS (4)
  - Rectal haemorrhage [Unknown]
  - Cytomegalovirus infection [Unknown]
  - Off label use [Unknown]
  - Sinusitis fungal [Unknown]
